FAERS Safety Report 16988300 (Version 1)
Quarter: 2019Q4

REPORT INFORMATION
  Report Type: Spontaneous
  Country: US (occurrence: US)
  Receive Date: 20190919
  Receipt Date: 20190919
  Transmission Date: 20200122
  Serious: Yes (Hospitalization, Other)
  Sender: FDA-Public Use
  Company Number: None

PATIENT
  Age: 81 Year
  Sex: Female
  Weight: 79.38 kg

DRUGS (10)
  1. FLOVENT [Concomitant]
     Active Substance: FLUTICASONE PROPIONATE
  2. PRADAXA [Concomitant]
     Active Substance: DABIGATRAN ETEXILATE MESYLATE
  3. DILTIAZEM. [Concomitant]
     Active Substance: DILTIAZEM
  4. SENIOR MULTIVITAMIN [Concomitant]
  5. HCT [Concomitant]
     Active Substance: HYDROCHLOROTHIAZIDE
  6. LOVASTATIN. [Concomitant]
     Active Substance: LOVASTATIN
  7. DILTIAZEM. [Suspect]
     Active Substance: DILTIAZEM
  8. LASARTAN [Concomitant]
  9. FLECAINIDE [Suspect]
     Active Substance: FLECAINIDE
     Indication: ATRIAL FIBRILLATION
     Dosage: ?          QUANTITY:1 PILL;?
     Route: 048
     Dates: start: 201802, end: 20190911
  10. PRADAXA [Suspect]
     Active Substance: DABIGATRAN ETEXILATE MESYLATE

REACTIONS (3)
  - Nightmare [None]
  - Sleep talking [None]
  - Contusion [None]

NARRATIVE: CASE EVENT DATE: 20190822
